FAERS Safety Report 9341750 (Version 2)
Quarter: 2013Q3

REPORT INFORMATION
  Report Type: Spontaneous
  Country: US (occurrence: US)
  Receive Date: 20130611
  Receipt Date: 20130730
  Transmission Date: 20140515
  Serious: Yes (Hospitalization, Disabling, Other)
  Sender: FDA-Public Use
  Company Number: US-009507513-1306USA003981

PATIENT
  Age: 72 Year
  Sex: Male
  Weight: 93.42 kg

DRUGS (2)
  1. JANUMET [Suspect]
     Indication: TYPE 2 DIABETES MELLITUS
     Dosage: 1 DF (50/1000), BID
     Route: 048
     Dates: start: 20111028, end: 20130109
  2. JANUMET [Suspect]
     Dosage: 1 DF, BID
     Route: 048
     Dates: start: 2013, end: 20130606

REACTIONS (5)
  - Pancreatitis [Recovered/Resolved]
  - Treatment noncompliance [Unknown]
  - Abdominal pain [Recovered/Resolved]
  - Vomiting [Recovered/Resolved]
  - Nausea [Recovered/Resolved]
